FAERS Safety Report 4932591-6 (Version None)
Quarter: 2006Q1

REPORT INFORMATION
  Report Type: 
  Country: None (occurrence: None)
  Receive Date: 20060301
  Receipt Date: 20060221
  Transmission Date: 20060701
  Serious: Yes (Hospitalization)
  Sender: FDA-Public Use
  Company Number: 863#3#2006-00003

PATIENT
  Age: 84 Year
  Sex: Male

DRUGS (15)
  1. IDROLAX (MACROGOL) [Suspect]
     Dosage: 10 G 1 IN 1 DAY(S)
     Route: 048
     Dates: end: 20060102
  2. WARFARIN SODIUM [Suspect]
     Route: 048
     Dates: end: 20060102
  3. ALLOPURINOL [Suspect]
     Route: 048
     Dates: end: 20060102
  4. OMEPRAZOLE [Suspect]
     Route: 048
     Dates: end: 20060106
  5. PIPERACILLIN + TAZOBACTAM (PIPERACILLIN SODIUM, TAZOBACTAM SODIUM) [Suspect]
     Indication: BRONCHITIS ACUTE
     Route: 042
     Dates: start: 20060102, end: 20060103
  6. PAROXETINE (PAROXETINE HYDROCHLORIDE) [Suspect]
     Route: 048
     Dates: end: 20060102
  7. SALBUTAMOL (SALBUTAMOL) [Suspect]
     Indication: BRONCHITIS ACUTE
     Route: 055
     Dates: start: 20060102
  8. IPRATROPIUM (IPRATROPIUM BROMIDE) [Suspect]
     Indication: BRONCHITIS ACUTE
     Route: 055
     Dates: start: 20060102
  9. DIGOXIN [Suspect]
     Dates: end: 20060102
  10. DIGOXIN [Suspect]
     Dates: start: 20060104
  11. FLUDROCORTISONE ACETATE [Suspect]
  12. BUFLOMEDIL (BUFLOMEDIL HYDROCHLORIDE) [Suspect]
  13. ACETAMINOPHEN [Suspect]
  14. LEVOFLOXACIN [Concomitant]
  15. AUGMENTIN '125' [Concomitant]

REACTIONS (5)
  - CONFUSIONAL STATE [None]
  - CYTOLYTIC HEPATITIS [None]
  - MYOCLONUS [None]
  - RENAL FAILURE ACUTE [None]
  - SOMNOLENCE [None]
